FAERS Safety Report 9198081 (Version 2)
Quarter: 2013Q2

REPORT INFORMATION
  Report Type: Spontaneous
  Country: GB (occurrence: GB)
  Receive Date: 20130329
  Receipt Date: 20130409
  Transmission Date: 20140414
  Serious: Yes (Death, Hospitalization)
  Sender: FDA-Public Use
  Company Number: PHHY2013GB030138

PATIENT
  Age: 74 Year
  Sex: Female

DRUGS (1)
  1. WARFARIN [Suspect]
     Indication: ANTICOAGULANT THERAPY

REACTIONS (12)
  - Death [Fatal]
  - Intestinal haematoma [Recovering/Resolving]
  - Rectal haemorrhage [Unknown]
  - Abdominal pain [Unknown]
  - Faeces discoloured [Unknown]
  - Haemoglobin decreased [Unknown]
  - Abdominal distension [Unknown]
  - Abdominal discomfort [Unknown]
  - Large intestinal obstruction [Unknown]
  - Mucosal ulceration [Unknown]
  - International normalised ratio increased [Unknown]
  - Pneumonia [Unknown]
